FAERS Safety Report 6986179-6 (Version None)
Quarter: 2010Q3

REPORT INFORMATION
  Report Type: 
  Country: None (occurrence: None)
  Receive Date: 20100915
  Receipt Date: 20090623
  Transmission Date: 20110219
  Serious: Yes (Hospitalization)
  Sender: FDA-Public Use
  Company Number: US-WYE-H09453009

PATIENT
  Age: 30 Year
  Sex: Female
  Weight: 115.77 kg

DRUGS (3)
  1. PRISTIQ [Suspect]
     Indication: DEPRESSION
     Route: 048
     Dates: start: 20090510, end: 20090515
  2. AMOXICILLIN TRIHYDRATE [Concomitant]
     Indication: INFECTION
     Route: 048
     Dates: start: 20090512, end: 20090518
  3. SINGULAIR [Concomitant]
     Indication: RHINITIS ALLERGIC
     Route: 048
     Dates: start: 20090511, end: 20090514

REACTIONS (2)
  - DIZZINESS [None]
  - HEADACHE [None]
